FAERS Safety Report 20630852 (Version 3)
Quarter: 2022Q2

REPORT INFORMATION
  Report Type: Report from Study
  Country: FR (occurrence: None)
  Receive Date: 20220324
  Receipt Date: 20220427
  Transmission Date: 20220721
  Serious: Yes (Death)
  Sender: FDA-Public Use
  Company Number: FR-ROCHE-3057099

PATIENT
  Age: 67 Year
  Sex: Male

DRUGS (25)
  1. ATEZOLIZUMAB [Suspect]
     Active Substance: ATEZOLIZUMAB
     Indication: Bladder transitional cell carcinoma
     Route: 041
     Dates: start: 20210216, end: 20220209
  2. BCG-MEDAC [Suspect]
     Active Substance: BACILLUS CALMETTE-GUERIN ANTIGEN, UNSPECIFIED SUBSTRAIN
     Indication: Bladder transitional cell carcinoma
     Route: 043
     Dates: start: 20210216, end: 20220223
  3. TOVIAZ [Concomitant]
     Active Substance: FESOTERODINE FUMARATE
     Dosage: 1 TAB AS NEEDED
     Route: 048
  4. DONORMYL [Concomitant]
     Dosage: 1 TAB DAILY
     Route: 048
  5. KARDEGIC [Concomitant]
     Active Substance: ASPIRIN DL-LYSINE
     Dates: start: 20201001
  6. VALIUM [Concomitant]
     Active Substance: DIAZEPAM
  7. METEOXANE [Concomitant]
     Active Substance: AMOBARBITAL\BELLADONNA LEAF\DIMETHICONE\ERGOTAMINE TARTRATE
     Dosage: 1 TAB DAILY
     Route: 048
  8. MORPHINE SULFATE [Concomitant]
     Active Substance: MORPHINE SULFATE
     Route: 048
  9. LYRICA [Concomitant]
     Active Substance: PREGABALIN
     Dates: start: 20210216
  10. ACETAMINOPHEN [Concomitant]
     Active Substance: ACETAMINOPHEN
     Dates: start: 20210309
  11. PHLOROGLUCINOL\1,3,5-TRIMETHOXYBENZENE [Concomitant]
     Active Substance: PHLOROGLUCINOL\1,3,5-TRIMETHOXYBENZENE
     Dates: start: 20210309
  12. MELATONIN [Concomitant]
     Active Substance: MELATONIN
     Route: 048
     Dates: start: 20210309
  13. XYLOCAINE [Concomitant]
     Active Substance: LIDOCAINE HYDROCHLORIDE
     Dosage: 1 APPLICATION DAILY
     Route: 048
     Dates: start: 20210601
  14. NALOXEGOL OXALATE [Concomitant]
     Active Substance: NALOXEGOL OXALATE
     Dates: start: 20211006
  15. MOVICOL [Concomitant]
     Active Substance: POLYETHYLENE GLYCOL 3350\POTASSIUM CHLORIDE\SODIUM BICARBONATE\SODIUM CHLORIDE
     Dosage: 2SACHET TWICE PER DAY
     Route: 048
     Dates: start: 20211006
  16. NORMACOL [Concomitant]
     Active Substance: HERBALS\KARAYA GUM
     Dosage: 1 BOTTLE TWICE PER DAY
     Route: 054
     Dates: start: 20211006
  17. ESOMEPRAZOLE [Concomitant]
     Active Substance: ESOMEPRAZOLE
     Dosage: 40MG DAILY
     Dates: start: 20211007
  18. VITABACT [Concomitant]
     Active Substance: PICLOXYDINE DIHYDROCHLORIDE
     Dosage: 1 DOSE THREE TIMES A DAY
     Route: 031
     Dates: start: 20211026
  19. AUGMENTIN [Concomitant]
     Active Substance: AMOXICILLIN\CLAVULANATE POTASSIUM
     Dosage: LG THREE TIMES A DAY
     Dates: start: 20211116
  20. FERINJECT [Concomitant]
     Active Substance: FERRIC CARBOXYMALTOSE
     Dosage: 1000MG DAILY
     Route: 042
     Dates: start: 20211116
  21. AMITRIPTYLINE HYDROCHLORIDE [Concomitant]
     Active Substance: AMITRIPTYLINE HYDROCHLORIDE
     Dosage: 15 DOSE DAILY
     Route: 048
     Dates: start: 20211228
  22. SKENAN [Concomitant]
     Active Substance: MORPHINE SULFATE
     Dosage: 20MG DAILY
     Route: 048
     Dates: start: 20220209
  23. PFIZER-BIONTECH COVID-19 VACCINE [Concomitant]
     Active Substance: TOZINAMERAN
     Dates: start: 20210726, end: 20210726
  24. PFIZER-BIONTECH COVID-19 VACCINE [Concomitant]
     Active Substance: TOZINAMERAN
     Dates: start: 20211227, end: 20211227
  25. OMEPRAZOLE [Concomitant]
     Active Substance: OMEPRAZOLE

REACTIONS (1)
  - Death [Fatal]

NARRATIVE: CASE EVENT DATE: 20220303
